FAERS Safety Report 5801744-7 (Version None)
Quarter: 2008Q3

REPORT INFORMATION
  Report Type: 
  Country: None (occurrence: None)
  Receive Date: 20080707
  Receipt Date: 20080704
  Transmission Date: 20090109
  Serious: Yes (Other)
  Sender: FDA-Public Use
  Company Number: D0057960A

PATIENT
  Sex: Female

DRUGS (3)
  1. ARIXTRA [Suspect]
     Route: 065
  2. MARCUMAR [Concomitant]
  3. FULVESTRANT [Concomitant]

REACTIONS (1)
  - BREAST CANCER [None]
